FAERS Safety Report 4923775-1 (Version None)
Quarter: 2006Q1

REPORT INFORMATION
  Report Type: 
  Country: None (occurrence: None)
  Receive Date: 20060227
  Receipt Date: 20050826
  Transmission Date: 20060701
  Serious: Yes (Hospitalization)
  Sender: FDA-Public Use
  Company Number: US-MERCK-0508USA04414

PATIENT
  Age: 78 Year
  Sex: Male
  Weight: 75 kg

DRUGS (4)
  1. VIOXX [Suspect]
     Indication: NECK PAIN
     Route: 048
     Dates: end: 20000401
  2. VIOXX [Suspect]
     Route: 048
     Dates: start: 19991208, end: 20040101
  3. VIOXX [Suspect]
     Indication: NERVE COMPRESSION
     Route: 048
     Dates: end: 20000401
  4. VIOXX [Suspect]
     Route: 048
     Dates: start: 19991208, end: 20040101

REACTIONS (3)
  - DRUG INEFFECTIVE [None]
  - MYOCARDIAL INFARCTION [None]
  - RENAL CELL CARCINOMA STAGE UNSPECIFIED [None]
